FAERS Safety Report 8828671 (Version 1)
Quarter: 2012Q4

REPORT INFORMATION
  Report Type: 
  Country: FR (occurrence: FR)
  Receive Date: 20121005
  Receipt Date: 20121005
  Transmission Date: 20130627
  Serious: Yes (Other)
  Sender: FDA-Public Use
  Company Number: FR-ASTELLAS-2012EU004693

PATIENT
  Age: 63 Year
  Sex: Female

DRUGS (1)
  1. VESICARE [Suspect]
     Indication: URINARY INCONTINENCE
     Dosage: 1 DF, UID/QD
     Route: 048
     Dates: start: 201206, end: 201206

REACTIONS (2)
  - Cerebrovascular accident [Unknown]
  - Dry mouth [Not Recovered/Not Resolved]
